FAERS Safety Report 16184482 (Version 1)
Quarter: 2019Q2

REPORT INFORMATION
  Report Type: Spontaneous
  Country: ES (occurrence: ES)
  Receive Date: 20190411
  Receipt Date: 20190411
  Transmission Date: 20190711
  Serious: Yes (Hospitalization, Other)
  Sender: FDA-Public Use
  Company Number: ES-PFIZER INC-2019148430

PATIENT
  Age: 72 Year
  Sex: Male

DRUGS (6)
  1. ENALAPRIL MALEATE. [Suspect]
     Active Substance: ENALAPRIL MALEATE
     Dosage: 10 MG, 2X/DAY (EVERY 12 HOURS)
  2. OMEPRAZOLE. [Suspect]
     Active Substance: OMEPRAZOLE
     Dosage: 20 MG, UNK
  3. BISOPROLOL FUMARATE. [Suspect]
     Active Substance: BISOPROLOL FUMARATE
     Dosage: 2.5 MG, UNK
  4. METFORMIN [Suspect]
     Active Substance: METFORMIN HYDROCHLORIDE
     Dosage: 1 DF, 2X/DAY (850 (UNITS NOT SPECIFIED), 1 TABLET, EVERY 12H)
  5. ADIRO [Suspect]
     Active Substance: ASPIRIN
     Dosage: 100 MG, UNK
  6. ATORVASTATIN CALCIUM. [Suspect]
     Active Substance: ATORVASTATIN CALCIUM
     Dosage: 40 MG, UNK

REACTIONS (4)
  - Acute myocardial infarction [Unknown]
  - Vascular stent stenosis [Unknown]
  - Cardiorenal syndrome [Unknown]
  - Ejection fraction decreased [Unknown]
